FAERS Safety Report 14303291 (Version 1)
Quarter: 2017Q4

REPORT INFORMATION
  Report Type: Spontaneous
  Country: FR (occurrence: FR)
  Receive Date: 20171219
  Receipt Date: 20171219
  Transmission Date: 20180321
  Serious: Yes (Other)
  Sender: FDA-Public Use
  Company Number: FR-OTSUKA-16936445

PATIENT
  Age: 62 Year
  Sex: Female

DRUGS (3)
  1. DEPAKOTE [Suspect]
     Active Substance: DIVALPROEX SODIUM
     Indication: HYPOMANIA
     Dosage: 1 G, QD
     Route: 048
     Dates: start: 2008
  2. ABILIFY [Suspect]
     Active Substance: ARIPIPRAZOLE
     Indication: BIPOLAR DISORDER
     Dosage: REDUCED TO 10MG PER DAY ON 28AUG12
     Route: 048
     Dates: start: 20110809
  3. DEPAKOTE [Suspect]
     Active Substance: DIVALPROEX SODIUM
     Indication: AGITATION

REACTIONS (6)
  - Pyrexia [Unknown]
  - Dyskinesia [Recovered/Resolved]
  - Akathisia [Recovered/Resolved]
  - Tremor [Recovered/Resolved]
  - Restless legs syndrome [Unknown]
  - Speech disorder [Unknown]

NARRATIVE: CASE EVENT DATE: 2012
